FAERS Safety Report 16852999 (Version 1)
Quarter: 2019Q3

REPORT INFORMATION
  Report Type: Spontaneous
  Country: US (occurrence: US)
  Receive Date: 20190925
  Receipt Date: 20190925
  Transmission Date: 20191005
  Serious: Yes (Hospitalization)
  Sender: FDA-Public Use
  Company Number: US-JNJFOC-20190930694

PATIENT
  Age: 77 Year
  Sex: Male

DRUGS (2)
  1. IMBRUVICA [Suspect]
     Active Substance: IBRUTINIB
     Indication: MANTLE CELL LYMPHOMA
     Dosage: 540 MG, QD
     Route: 048
     Dates: start: 20190611, end: 20190902
  2. IBRANCE [Suspect]
     Active Substance: PALBOCICLIB
     Indication: MANTLE CELL LYMPHOMA
     Dosage: 100 MG, QD
     Route: 048
     Dates: start: 20190611, end: 20190902

REACTIONS (1)
  - Atrial fibrillation [Unknown]

NARRATIVE: CASE EVENT DATE: 20190903
